FAERS Safety Report 8963134 (Version 2)
Quarter: 2013Q1

REPORT INFORMATION
  Report Type: Report from Study
  Country: JP (occurrence: JP)
  Receive Date: 20121214
  Receipt Date: 20130122
  Transmission Date: 20140127
  Serious: Yes (Hospitalization, Other)
  Sender: FDA-Public Use
  Company Number: JP-ROCHE-1153300

PATIENT
  Age: 78 Year
  Sex: Male
  Weight: 65 kg

DRUGS (8)
  1. BEVACIZUMAB [Suspect]
     Indication: COLON CANCER METASTATIC
     Route: 041
     Dates: start: 20120906, end: 20120919
  2. IRINOTECAN HYDROCHLORIDE [Concomitant]
     Indication: COLON CANCER METASTATIC
     Dosage: DRUG REPORTED AS : IRINOTECAN HYDROCHLORIDE HYDRATEDOSAGE IS UNCERTAIN.
     Route: 041
     Dates: start: 20120906, end: 20120919
  3. TS-1 [Concomitant]
     Indication: COLON CANCER METASTATIC
     Dosage: DOSAGE IS UNCERTAIN.
     Route: 048
     Dates: start: 20120906, end: 20120920
  4. PARIET [Concomitant]
     Indication: PROPHYLAXIS
     Route: 048
     Dates: start: 20120812, end: 20120910
  5. GRANISETRON [Concomitant]
     Indication: PROPHYLAXIS OF NAUSEA AND VOMITING
     Route: 041
     Dates: start: 20120906, end: 20120919
  6. DECADRON [Concomitant]
     Indication: PROPHYLAXIS OF NAUSEA AND VOMITING
     Route: 041
     Dates: start: 20120906, end: 20120919
  7. DECADRON [Concomitant]
     Indication: PROPHYLAXIS OF NAUSEA AND VOMITING
     Route: 048
     Dates: start: 20120907, end: 20120921
  8. TAKEPRON [Concomitant]
     Indication: PROPHYLAXIS
     Route: 048
     Dates: start: 20120911

REACTIONS (7)
  - Small intestinal haemorrhage [Recovered/Resolved]
  - Small intestinal ulcer haemorrhage [Recovered/Resolved]
  - Haemoglobin decreased [Unknown]
  - Enterocolitis [Recovered/Resolved]
  - Pyrexia [Unknown]
  - Renal disorder [Unknown]
  - Ileus [Unknown]
